FAERS Safety Report 4743554-8 (Version None)
Quarter: 2005Q3

REPORT INFORMATION
  Report Type: 
  Country: None (occurrence: None)
  Receive Date: 20050809
  Receipt Date: 20050801
  Transmission Date: 20060218
  Serious: Yes (Hospitalization, Disabling)
  Sender: FDA-Public Use
  Company Number: A044-002-005665

PATIENT
  Age: 68 Year
  Sex: Female

DRUGS (7)
  1. ARICEPT [Suspect]
     Indication: DEMENTIA ALZHEIMER'S TYPE
     Dosage: 10 MG, 1 IN 1 D, ORAL
     Route: 048
     Dates: start: 20030801
  2. PHYLLOCONTIN (AMINOPHYLLINE) [Concomitant]
  3. BENDROFLUAZIDE (BENDROFLUMETHIAZIDE) [Concomitant]
  4. NICARDIPINE HCL [Concomitant]
  5. AMITRIPTYLINE HCL [Concomitant]
  6. RAMIPRIL [Concomitant]
  7. CARBIMAZOLE (CARBIMAZOLE) [Concomitant]

REACTIONS (5)
  - DYSKINESIA [None]
  - HYSTERECTOMY [None]
  - HYSTEROSALPINGO-OOPHORECTOMY [None]
  - MUSCLE SPASMS [None]
  - NEOPLASM MALIGNANT [None]
